FAERS Safety Report 24137892 (Version 1)
Quarter: 2024Q3

REPORT INFORMATION
  Report Type: Spontaneous
  Country: US (occurrence: None)
  Receive Date: 20240725
  Receipt Date: 20240725
  Transmission Date: 20241016
  Serious: Yes (Other)
  Sender: Public
  Company Number: None

PATIENT
  Age: 31 Year
  Sex: Female
  Weight: 74.84 kg

DRUGS (1)
  1. TUBERCULIN PURIFIED PROTEIN DERIVATIVE (MANTOUX) [Suspect]
     Active Substance: TUBERCULIN PURIFIED PROTEIN DERIVATIVE (MANTOUX)
     Indication: Injection site pruritus

REACTIONS (12)
  - Nausea [None]
  - Vomiting [None]
  - Abdominal pain upper [None]
  - Sleep disorder [None]
  - Diarrhoea [None]
  - Pyrexia [None]
  - Asthenia [None]
  - Headache [None]
  - Muscle spasms [None]
  - Screaming [None]
  - Muscular weakness [None]
  - Anal haemorrhage [None]

NARRATIVE: CASE EVENT DATE: 20240723
